FAERS Safety Report 4376392-9 (Version None)
Quarter: 2004Q2

REPORT INFORMATION
  Report Type: 
  Country: None (occurrence: None)
  Receive Date: 20040610
  Receipt Date: 20040610
  Transmission Date: 20050107
  Serious: Yes (Life-Threatening)
  Sender: FDA-Public Use
  Company Number: None

PATIENT
  Sex: Male
  Weight: 83.9154 kg

DRUGS (1)
  1. LAMICTAL [Suspect]
     Indication: BIPOLAR DISORDER
     Dosage: 25 MG 1 MORN 2 ORAL
     Route: 048
     Dates: start: 20040515

REACTIONS (4)
  - DIZZINESS [None]
  - MEDICATION ERROR [None]
  - NAUSEA [None]
  - RASH [None]
